FAERS Safety Report 24422318 (Version 1)
Quarter: 2024Q4

REPORT INFORMATION
  Report Type: Spontaneous
  Country: US (occurrence: None)
  Receive Date: 20241009
  Receipt Date: 20241009
  Transmission Date: 20250115
  Serious: No
  Sender: Public
  Company Number: None

PATIENT
  Age: 68 Year
  Sex: Male
  Weight: 81 kg

DRUGS (1)
  1. WARFARIN SODIUM [Suspect]
     Active Substance: WARFARIN SODIUM
     Dates: start: 20170426

REACTIONS (7)
  - Gastrointestinal haemorrhage [None]
  - Blood loss anaemia [None]
  - Ankle fracture [None]
  - Fall [None]
  - International normalised ratio increased [None]
  - Transfusion [None]
  - Gastric ulcer [None]

NARRATIVE: CASE EVENT DATE: 20240616
